FAERS Safety Report 23784326 (Version 1)
Quarter: 2024Q2

REPORT INFORMATION
  Report Type: Spontaneous
  Country: US (occurrence: US)
  Receive Date: 20240425
  Receipt Date: 20240425
  Transmission Date: 20240716
  Serious: No
  Sender: FDA-Public Use
  Company Number: US-Kiniksa Pharmaceuticals Ltd.-2023KPU001167

PATIENT
  Age: 57 Year

DRUGS (3)
  1. ARCALYST [Suspect]
     Active Substance: RILONACEPT
     Indication: Pericarditis
     Dosage: LOADING DOSE
     Route: 058
     Dates: start: 20231216
  2. COLCHICINE [Concomitant]
     Active Substance: COLCHICINE
     Indication: Product used for unknown indication
     Dates: start: 202307
  3. PREDNISONE [Concomitant]
     Active Substance: PREDNISONE
     Indication: Product used for unknown indication
     Dates: start: 202308

REACTIONS (9)
  - Incorrect dose administered by product [Not Recovered/Not Resolved]
  - Device issue [Not Recovered/Not Resolved]
  - Fatigue [Recovering/Resolving]
  - Paraesthesia oral [Unknown]
  - Oral herpes [Unknown]
  - Paraesthesia [Unknown]
  - Hypoaesthesia [Unknown]
  - Stomatitis [Unknown]
  - Blister [Unknown]

NARRATIVE: CASE EVENT DATE: 20231217
